FAERS Safety Report 9270336 (Version 2)
Quarter: 2013Q2

REPORT INFORMATION
  Report Type: Spontaneous
  Country: IT (occurrence: IT)
  Receive Date: 20130503
  Receipt Date: 20130604
  Transmission Date: 20140414
  Serious: Yes (Hospitalization, Other)
  Sender: FDA-Public Use
  Company Number: IT-ELI_LILLY_AND_COMPANY-IT201304007992

PATIENT
  Sex: Male
  Weight: 82 kg

DRUGS (4)
  1. ALIMTA [Suspect]
     Indication: PLEURAL MESOTHELIOMA
     Dosage: 1000 MG, UNKNOWN
     Route: 042
     Dates: start: 20121116, end: 20130125
  2. ALIMTA [Suspect]
     Dosage: 800 MG, UNKNOWN
     Route: 042
     Dates: start: 20130125, end: 20130125
  3. CARBOPLATIN [Concomitant]
     Indication: PLEURAL MESOTHELIOMA
     Dosage: 398 MG, UNKNOWN
     Route: 042
     Dates: start: 20121116, end: 20130124
  4. CARBOPLATIN [Concomitant]
     Dosage: 300 MG, UNKNOWN
     Route: 042
     Dates: start: 20130125, end: 20130125

REACTIONS (6)
  - Polyneuropathy [Not Recovered/Not Resolved]
  - Paresis cranial nerve [Not Recovered/Not Resolved]
  - Paresis anal sphincter [Not Recovered/Not Resolved]
  - Hyporeflexia [Not Recovered/Not Resolved]
  - Anaemia [Not Recovered/Not Resolved]
  - Off label use [Recovered/Resolved]
